FAERS Safety Report 19816580 (Version 5)
Quarter: 2022Q1

REPORT INFORMATION
  Report Type: Spontaneous
  Country: US (occurrence: US)
  Receive Date: 20210909
  Receipt Date: 20220308
  Transmission Date: 20220424
  Serious: Yes (Other)
  Sender: FDA-Public Use
  Company Number: US-SA-SAC20210907000636

PATIENT
  Age: 46 Year
  Sex: Female

DRUGS (2)
  1. DUPIXENT [Suspect]
     Active Substance: DUPILUMAB
     Indication: Asthma
     Dosage: 300 MG
     Route: 058
     Dates: start: 201907
  2. DUPIXENT [Suspect]
     Active Substance: DUPILUMAB
     Dosage: 300 MG, QOW
     Route: 058
     Dates: start: 20211104

REACTIONS (16)
  - Neuropathy peripheral [Unknown]
  - Neuropathy peripheral [Unknown]
  - Cataract [Unknown]
  - Pain [Unknown]
  - Dry eye [Unknown]
  - Condition aggravated [Unknown]
  - Paraesthesia [Unknown]
  - Hypoaesthesia [Unknown]
  - Photopsia [Unknown]
  - Bronchitis [Unknown]
  - Middle insomnia [Unknown]
  - Arthralgia [Unknown]
  - Dry eye [Unknown]
  - Therapy cessation [Unknown]
  - Product dose omission issue [Unknown]
  - Product use issue [Unknown]

NARRATIVE: CASE EVENT DATE: 20190601
